FAERS Safety Report 21950307 (Version 1)
Quarter: 2023Q1

REPORT INFORMATION
  Report Type: Spontaneous
  Country: AU (occurrence: AU)
  Receive Date: 20230203
  Receipt Date: 20230203
  Transmission Date: 20230418
  Serious: Yes (Death, Other)
  Sender: FDA-Public Use
  Company Number: AU-CIPLA LTD.-2023AU00563

PATIENT

DRUGS (4)
  1. PREGABALIN [Suspect]
     Active Substance: PREGABALIN
     Indication: Pain management
     Dosage: UNK
     Route: 065
  2. OXYCODONE [Suspect]
     Active Substance: OXYCODONE
     Indication: Pain management
     Dosage: 30 MILLIGRAM, BID
     Route: 048
  3. OXYCODONE [Suspect]
     Active Substance: OXYCODONE
     Dosage: 10-20 MG FOUR TIMES A DAY AS NECESSARY
     Route: 048
  4. FENTANYL [Suspect]
     Active Substance: FENTANYL
     Indication: Pain management
     Dosage: 75-150 MICROG EVERY 2H
     Route: 058

REACTIONS (4)
  - Toxicity to various agents [Fatal]
  - Product prescribing error [Fatal]
  - Product communication issue [Fatal]
  - Respiratory depression [Fatal]
